FAERS Safety Report 10878219 (Version 1)
Quarter: 2015Q1

REPORT INFORMATION
  Report Type: Spontaneous
  Country: GB (occurrence: None)
  Receive Date: 20150224
  Receipt Date: 20150224
  Transmission Date: 20150721
  Serious: Yes (Disabling, Other)
  Sender: FDA-Public Use
  Company Number: GB-ALKEM-000866

PATIENT
  Age: 61 Year
  Sex: Female
  Weight: 55.9 kg

DRUGS (11)
  1. CALCICHEW [Concomitant]
     Active Substance: CALCIUM CARBONATE
  2. BECLOMETASONE [Concomitant]
     Active Substance: BECLOMETHASONE DIPROPIONATE
  3. ALFACALCIDOL [Concomitant]
     Active Substance: ALFACALCIDOL
  4. ALLOPURINOL. [Concomitant]
     Active Substance: ALLOPURINOL
  5. SIMVASTATIN. [Concomitant]
     Active Substance: SIMVASTATIN
  6. AMLODIPINE [Concomitant]
     Active Substance: AMLODIPINE BESYLATE
  7. LANSOPRAZOLE. [Concomitant]
     Active Substance: LANSOPRAZOLE
  8. SALBUTAMOL [Concomitant]
     Active Substance: ALBUTEROL
  9. PROGRAF [Concomitant]
     Active Substance: TACROLIMUS\TACROLIMUS ANHYDROUS
  10. MYCOPHENOLATE MOFETIL (MYCOPHENOLATE MOFETIL) [Suspect]
     Active Substance: MYCOPHENOLATE MOFETIL
     Indication: IMMUNOSUPPRESSION
     Route: 048
     Dates: start: 20070619
  11. PREDNISOLONE. [Concomitant]
     Active Substance: PREDNISOLONE

REACTIONS (5)
  - Blood immunoglobulin M decreased [None]
  - Lower respiratory tract infection [None]
  - Weight decreased [None]
  - Bronchiectasis [None]
  - Polyp [None]

NARRATIVE: CASE EVENT DATE: 20071001
